FAERS Safety Report 13276632 (Version 2)
Quarter: 2017Q4

REPORT INFORMATION
  Report Type: Spontaneous
  Country: US (occurrence: US)
  Receive Date: 20170228
  Receipt Date: 20171122
  Transmission Date: 20180320
  Serious: No
  Sender: FDA-Public Use
  Company Number: US-009507513-1702USA006573

PATIENT
  Age: 33 Year
  Sex: Female

DRUGS (5)
  1. ESTROGEN NOS [Concomitant]
     Active Substance: ESTROGENS
     Dosage: UNK, QOD
  2. GANIRELIX ACETATE INJECTION [Suspect]
     Active Substance: GANIRELIX ACETATE
     Indication: ASSISTED FERTILISATION
     Dosage: UNK, QD
     Route: 058
     Dates: start: 20170208, end: 20170214
  3. VIVELLE (ETHINYL ESTRADIOL (+) NORGESTIMATE) [Concomitant]
     Indication: ASSISTED FERTILISATION
     Dosage: 0.1 MG, QD
     Route: 062
     Dates: start: 20170208, end: 20170212
  4. GANIRELIX ACETATE INJECTION [Suspect]
     Active Substance: GANIRELIX ACETATE
     Indication: INFERTILITY FEMALE
     Dosage: UNK, QD
     Route: 058
     Dates: start: 20170208, end: 20170212
  5. GANIRELIX ACETATE INJECTION [Suspect]
     Active Substance: GANIRELIX ACETATE
     Indication: BLOOD LUTEINISING HORMONE

REACTIONS (3)
  - Muscle spasms [Unknown]
  - Uterine spasm [Unknown]
  - Exposure during pregnancy [Unknown]

NARRATIVE: CASE EVENT DATE: 20170208
